FAERS Safety Report 15542994 (Version 3)
Quarter: 2018Q4

REPORT INFORMATION
  Report Type: Spontaneous
  Country: CO (occurrence: CO)
  Receive Date: 20181023
  Receipt Date: 20181106
  Transmission Date: 20190205
  Serious: Yes (Other)
  Sender: FDA-Public Use
  Company Number: CO-ALLERGAN-1838987US

PATIENT
  Age: 8 Year
  Sex: Female

DRUGS (2)
  1. TRIPTORELIN PAMOATE - BP [Suspect]
     Active Substance: TRIPTORELIN PAMOATE
     Indication: OFF LABEL USE
     Dosage: 1 LIO X 1 FCO LYOPHILIZED FOR SOLUTION, SINGLE
     Route: 030
     Dates: start: 20180102, end: 20180914
  2. TRIPTORELIN PAMOATE - BP [Suspect]
     Active Substance: TRIPTORELIN PAMOATE
     Indication: PRECOCIOUS PUBERTY
     Dosage: 1 LIO X 1 FCO LYOPHILIZED FOR SOLUTION, SINGLE
     Route: 030
     Dates: start: 20180102, end: 20180914

REACTIONS (4)
  - Developmental hip dysplasia [Not Recovered/Not Resolved]
  - Bone pain [Not Recovered/Not Resolved]
  - Spinal deformity [Not Recovered/Not Resolved]
  - Off label use [Unknown]

NARRATIVE: CASE EVENT DATE: 20180821
